FAERS Safety Report 16881431 (Version 1)
Quarter: 2019Q4

REPORT INFORMATION
  Report Type: Spontaneous
  Country: US (occurrence: US)
  Receive Date: 20191003
  Receipt Date: 20191003
  Transmission Date: 20200122
  Serious: Yes (Hospitalization)
  Sender: FDA-Public Use
  Company Number: None

PATIENT
  Age: 51 Year
  Sex: Male
  Weight: 110 kg

DRUGS (10)
  1. DEXMEDETOMIDINE. [Concomitant]
     Active Substance: DEXMEDETOMIDINE
     Dates: start: 20190116, end: 20190116
  2. GABAPENTIN. [Concomitant]
     Active Substance: GABAPENTIN
     Dates: start: 20190116, end: 20190116
  3. LIDOCAINE. [Suspect]
     Active Substance: LIDOCAINE
     Indication: POSTOPERATIVE ANALGESIA
     Dosage: ?          OTHER FREQUENCY:1.5 MG/MIN;?
     Route: 041
     Dates: start: 20190116, end: 20190116
  4. CELECOXIB. [Concomitant]
     Active Substance: CELECOXIB
     Dates: start: 20190116, end: 20190116
  5. KETAMINE [Concomitant]
     Active Substance: KETAMINE
     Dates: start: 20190116, end: 20190116
  6. FENTANYL. [Concomitant]
     Active Substance: FENTANYL
     Dates: start: 20190116, end: 20190116
  7. PROPOFOL. [Concomitant]
     Active Substance: PROPOFOL
     Dates: start: 20190116, end: 20190116
  8. MAGNESIUM [Concomitant]
     Active Substance: MAGNESIUM
     Dates: start: 20190116, end: 20190116
  9. MIDAZOLAM [Concomitant]
     Active Substance: MIDAZOLAM HYDROCHLORIDE
     Dates: start: 20190116, end: 20190116
  10. ACETAMINOPHEN. [Concomitant]
     Active Substance: ACETAMINOPHEN
     Dates: start: 20190116, end: 20190116

REACTIONS (1)
  - Vision blurred [None]

NARRATIVE: CASE EVENT DATE: 20190116
